FAERS Safety Report 21640292 (Version 10)
Quarter: 2023Q4

REPORT INFORMATION
  Report Type: Report from Study
  Country: JP (occurrence: JP)
  Receive Date: 20221124
  Receipt Date: 20231017
  Transmission Date: 20240109
  Serious: Yes (Hospitalization)
  Sender: FDA-Public Use
  Company Number: JP-002147023-NVSC2022JP264579

PATIENT
  Age: 75 Year
  Sex: Female
  Weight: 47 kg

DRUGS (34)
  1. ILARIS [Suspect]
     Active Substance: CANAKINUMAB
     Indication: Still^s disease
     Dosage: 1.25 ML, Q4W
     Route: 058
     Dates: start: 20211013, end: 20221109
  2. ILARIS [Suspect]
     Active Substance: CANAKINUMAB
     Dosage: 1.14 ML, Q4W
     Route: 058
     Dates: start: 20230111
  3. PREDNISOLONE [Suspect]
     Active Substance: PREDNISOLONE
     Indication: Still^s disease
     Dosage: UNK
     Route: 065
     Dates: start: 20221013, end: 20221125
  4. AMLODIPINE [Concomitant]
     Active Substance: AMLODIPINE BESYLATE
     Indication: Hypertension
     Dosage: UNK
     Route: 065
     Dates: start: 1997
  5. URSODIOL [Concomitant]
     Active Substance: URSODIOL
     Indication: Liver disorder
     Dosage: UNK
     Route: 065
     Dates: start: 20201006, end: 20221127
  6. ATOVAQUONE [Concomitant]
     Active Substance: ATOVAQUONE
     Indication: Infection prophylaxis
     Dosage: UNK
     Route: 065
     Dates: start: 20201021, end: 20221126
  7. TRAVELMIN [Concomitant]
     Indication: Vertigo positional
     Dosage: UNK
     Route: 065
     Dates: start: 20201211, end: 20221127
  8. FAMOTIDINE [Concomitant]
     Active Substance: FAMOTIDINE
     Indication: Gastric ulcer
     Dosage: UNK
     Route: 065
     Dates: start: 20201215, end: 20221126
  9. ACETAMINOPHEN [Concomitant]
     Active Substance: ACETAMINOPHEN
     Indication: Still^s disease
     Dosage: UNK
     Route: 065
     Dates: start: 20210905, end: 20221127
  10. AZUNOL [Concomitant]
     Indication: Still^s disease
     Dosage: UNK, GARGLE LIQUID
     Route: 065
     Dates: start: 20210905
  11. AZUNOL [Concomitant]
     Indication: Dry skin
     Dosage: UNK, OINTMENT
     Route: 065
     Dates: start: 20210924
  12. AZUNOL [Concomitant]
     Indication: Still^s disease
  13. HEPARINOID [Concomitant]
     Indication: Dry skin
     Dosage: UNK
     Route: 065
     Dates: start: 20210906
  14. FEXOFENADINE HYDROCHLORIDE [Concomitant]
     Active Substance: FEXOFENADINE HYDROCHLORIDE
     Indication: Still^s disease
     Dosage: UNK
     Route: 065
     Dates: start: 20210921, end: 20221127
  15. CAMPHOR\CAPSICUM\METHYL SALICYLATE [Concomitant]
     Active Substance: CAMPHOR\CAPSICUM\METHYL SALICYLATE
     Indication: Sciatica
     Dosage: UNK
     Route: 065
     Dates: start: 20220105
  16. SODIUM BICARBONATE\SODIUM PHOSPHATE, MONOBASIC [Concomitant]
     Active Substance: SODIUM BICARBONATE\SODIUM PHOSPHATE, MONOBASIC
     Indication: Constipation
     Dosage: UNK
     Route: 065
     Dates: start: 20220330
  17. MAGNESIUM OXIDE [Concomitant]
     Active Substance: MAGNESIUM OXIDE
     Indication: Constipation
     Dosage: UNK
     Route: 065
     Dates: start: 20220427, end: 20221126
  18. AMITIZA [Concomitant]
     Active Substance: LUBIPROSTONE
     Indication: Constipation
     Dosage: UNK
     Route: 065
     Dates: start: 20220623
  19. SHAKUYAKUKANZOTO [Concomitant]
     Active Substance: HERBALS
     Indication: Pain
     Dosage: UNK
     Route: 065
     Dates: start: 20220817, end: 20221127
  20. LOCOID [Concomitant]
     Active Substance: HYDROCORTISONE BUTYRATE
     Indication: Dry skin
     Dosage: UNK
     Route: 065
     Dates: start: 20221109
  21. LOXOPROFEN SODIUM [Concomitant]
     Active Substance: LOXOPROFEN SODIUM
     Indication: Periodontitis
     Dosage: UNK
     Route: 065
     Dates: start: 20221114, end: 20221130
  22. XYLOCAINE [Concomitant]
     Active Substance: LIDOCAINE HYDROCHLORIDE
     Indication: Anaesthesia
     Dosage: UNK
     Route: 065
     Dates: start: 20221121, end: 20221121
  23. AMINO ACIDS\DEXTROSE\ELECTROLYTES NOS\VITAMINS [Concomitant]
     Active Substance: AMINO ACIDS\DEXTROSE\ELECTROLYTES NOS\VITAMINS
     Indication: Fluid replacement
     Dosage: UNK
     Route: 065
     Dates: start: 20221124, end: 20221127
  24. SOLITA T [Concomitant]
     Indication: Fluid replacement
     Dosage: UNK
     Route: 065
     Dates: start: 20221124, end: 20221124
  25. AMPICILLIN SODIUM\SULBACTAM SODIUM [Concomitant]
     Active Substance: AMPICILLIN SODIUM\SULBACTAM SODIUM
     Indication: Osteomyelitis
     Dosage: UNK
     Route: 065
     Dates: start: 20221124, end: 20221125
  26. AMPICILLIN SODIUM\SULBACTAM SODIUM [Concomitant]
     Active Substance: AMPICILLIN SODIUM\SULBACTAM SODIUM
     Dosage: UNK
     Route: 065
     Dates: start: 20221206, end: 20221209
  27. BISACODYL [Concomitant]
     Active Substance: BISACODYL
     Indication: Constipation
     Dosage: UNK
     Route: 065
     Dates: start: 20221124
  28. PIPERACILLIN SODIUM\TAZOBACTAM SODIUM [Concomitant]
     Active Substance: PIPERACILLIN SODIUM\TAZOBACTAM SODIUM
     Indication: Osteomyelitis
     Dosage: UNK
     Route: 065
     Dates: start: 20221126, end: 20221128
  29. VANCOMYCIN [Concomitant]
     Active Substance: VANCOMYCIN
     Indication: Osteomyelitis
     Dosage: UNK
     Route: 065
     Dates: start: 20221126, end: 20221201
  30. ACETAMINOPHEN [Concomitant]
     Active Substance: ACETAMINOPHEN
     Indication: Osteomyelitis
     Dosage: UNK
     Route: 065
     Dates: start: 20221127, end: 20221129
  31. MEROPENEM [Concomitant]
     Active Substance: MEROPENEM
     Indication: Osteomyelitis
     Dosage: UNK
     Route: 065
     Dates: start: 20221128, end: 20221205
  32. AMOXICILLIN [Concomitant]
     Active Substance: AMOXICILLIN
     Indication: Osteomyelitis
     Dosage: UNK
     Route: 065
     Dates: start: 20221209, end: 20230101
  33. AUGMENTIN [Concomitant]
     Active Substance: AMOXICILLIN\CLAVULANATE POTASSIUM
     Indication: Osteomyelitis
     Dosage: UNK
     Route: 065
     Dates: start: 20221209, end: 20230101
  34. AMPICILLIN [Concomitant]
     Active Substance: AMPICILLIN
     Indication: Osteomyelitis
     Dosage: UNK
     Route: 065
     Dates: start: 20230102, end: 20230104

REACTIONS (1)
  - Cellulitis [Recovered/Resolved]

NARRATIVE: CASE EVENT DATE: 20221124
